FAERS Safety Report 5795139-2 (Version None)
Quarter: 2008Q2

REPORT INFORMATION
  Report Type: 
  Country: None (occurrence: None)
  Receive Date: 20080630
  Receipt Date: 20080507
  Transmission Date: 20081010
  Serious: Yes (Other)
  Sender: FDA-Public Use
  Company Number: US-BRISTOL-MYERS SQUIBB COMPANY-14185391

PATIENT
  Sex: Female

DRUGS (3)
  1. ORENCIA [Suspect]
     Indication: RHEUMATOID ARTHRITIS
     Route: 042
  2. ENBREL [Concomitant]
     Indication: RHEUMATOID ARTHRITIS
  3. HUMIRA [Concomitant]
     Indication: RHEUMATOID ARTHRITIS

REACTIONS (1)
  - HYPERSENSITIVITY [None]
